FAERS Safety Report 25039072 (Version 1)
Quarter: 2025Q1

REPORT INFORMATION
  Report Type: Spontaneous
  Country: CA (occurrence: CA)
  Receive Date: 20250305
  Receipt Date: 20250305
  Transmission Date: 20250408
  Serious: Yes (Hospitalization)
  Sender: ROCHE
  Company Number: CA-002147023-NVSC2025CA033298

PATIENT
  Age: 40 Year
  Sex: Female

DRUGS (1)
  1. OMALIZUMAB [Suspect]
     Active Substance: OMALIZUMAB
     Indication: Chronic spontaneous urticaria
     Dosage: 300 MG (1 EVERY 4 WEEKS)
     Route: 050

REACTIONS (4)
  - Discomfort [Recovering/Resolving]
  - Mental disorder [Recovering/Resolving]
  - Syncope [Recovering/Resolving]
  - Urticaria [Recovering/Resolving]
